FAERS Safety Report 5817702-2 (Version None)
Quarter: 2008Q3

REPORT INFORMATION
  Report Type: 
  Country: None (occurrence: None)
  Receive Date: 20080722
  Receipt Date: 20080711
  Transmission Date: 20090109
  Serious: Yes (Other)
  Sender: FDA-Public Use
  Company Number: PHHY2008JP12887

PATIENT
  Age: 26 Year
  Sex: Female

DRUGS (11)
  1. CYCLOSPORINE [Suspect]
     Indication: CORD BLOOD TRANSPLANT THERAPY
     Dosage: 5 MG/KG PER DAY
  2. CYCLOSPORINE [Suspect]
     Indication: APLASTIC ANAEMIA
     Dosage: 120 MG/KG
  3. CYCLOSPORINE [Suspect]
     Dosage: 50 MG/KG
  4. MYCOPHENOLATE MOFETIL [Suspect]
     Indication: CORD BLOOD TRANSPLANT THERAPY
  5. MELPHALAN [Concomitant]
     Indication: CORD BLOOD TRANSPLANT THERAPY
     Dosage: 50 MG/KG/DAY
  6. FLUDARABINE PHOSPHATE [Concomitant]
     Indication: CORD BLOOD TRANSPLANT THERAPY
     Dosage: 150 MG/M2 PER DAY
  7. FLUDARABINE PHOSPHATE [Concomitant]
     Dosage: 90 MG/M2 PER DAY
  8. CYCLOPHOSPHAMIDE [Concomitant]
     Indication: CORD BLOOD TRANSPLANT THERAPY
     Dosage: 120 MG/KG/DAY
  9. CYCLOPHOSPHAMIDE [Concomitant]
     Dosage: 50 MG/KG/D
  10. IRRADIATION [Concomitant]
     Dosage: 2 GY
  11. IRRADIATION [Concomitant]
     Dosage: 4 GY

REACTIONS (4)
  - DRUG INEFFECTIVE [None]
  - RETINAL HAEMORRHAGE [None]
  - TRANSPLANT FAILURE [None]
  - VISUAL ACUITY REDUCED [None]
